FAERS Safety Report 9341594 (Version 1)
Quarter: 2013Q2

REPORT INFORMATION
  Report Type: Spontaneous
  Country: US (occurrence: US)
  Receive Date: 20130611
  Receipt Date: 20130611
  Transmission Date: 20140414
  Serious: Yes (Hospitalization)
  Sender: FDA-Public Use
  Company Number: US-SUN PHARMACEUTICAL INDUSTRIES LTD-2013SUN00709

PATIENT
  Age: 27 Year
  Sex: Male

DRUGS (1)
  1. BUPROPION HYDROCHLORIDE EXTENDED-RELEASE TABLETS, USP (SR) 100MG [Suspect]
     Indication: PRODUCT USED FOR UNKNOWN INDICATION
     Dosage: SNORTED SEVERAL 300 MG TABLETS

REACTIONS (11)
  - Serotonin syndrome [Unknown]
  - Convulsion [Unknown]
  - Hallucination [Unknown]
  - Urinary incontinence [Unknown]
  - Hypertension [Unknown]
  - Tachycardia [Unknown]
  - Chest pain [Unknown]
  - Vision blurred [Unknown]
  - Anxiety [Unknown]
  - Tremor [Unknown]
  - Drug abuse [Unknown]
